FAERS Safety Report 5627004-5 (Version None)
Quarter: 2008Q1

REPORT INFORMATION
  Report Type: 
  Country: None (occurrence: None)
  Receive Date: 20080117
  Receipt Date: 20070910
  Transmission Date: 20080703
  Serious: Yes (Hospitalization)
  Sender: FDA-Public Use
  Company Number: E2020-01608-SPO-US

PATIENT
  Age: 90 Year
  Sex: Female

DRUGS (1)
  1. ARICEPT [Suspect]
     Indication: AMNESIA
     Dosage: 10 MG, 1 IN 1 D, ORAL
     Route: 048
     Dates: start: 19980101

REACTIONS (13)
  - ATRIOVENTRICULAR BLOCK SECOND DEGREE [None]
  - BRADYCARDIA [None]
  - DRY EYE [None]
  - DYSPNOEA [None]
  - HOSTILITY [None]
  - HOT FLUSH [None]
  - HYPOXIA [None]
  - MUSCULAR WEAKNESS [None]
  - ORTHOSTATIC HYPOTENSION [None]
  - RESTLESSNESS [None]
  - SYNCOPE [None]
  - URINARY INCONTINENCE [None]
  - VISION BLURRED [None]
